FAERS Safety Report 15978605 (Version 2)
Quarter: 2019Q2

REPORT INFORMATION
  Report Type: Report from Study
  Country: CA (occurrence: CA)
  Receive Date: 20190219
  Receipt Date: 20190422
  Transmission Date: 20190711
  Serious: Yes (Death, Hospitalization, Other)
  Sender: FDA-Public Use
  Company Number: CA-BRISTOL-MYERS SQUIBB COMPANY-BMS-2018-119047

PATIENT
  Sex: Male

DRUGS (1)
  1. NIVOLUMAB [Suspect]
     Active Substance: NIVOLUMAB
     Indication: HEPATOCELLULAR CARCINOMA
     Dosage: 191 MG, Q2WK
     Route: 065
     Dates: start: 20181119, end: 20190122

REACTIONS (12)
  - Ascites [Unknown]
  - Dyspnoea [Unknown]
  - Depression [Unknown]
  - Fatigue [Unknown]
  - Abdominal distension [Unknown]
  - Nausea [Unknown]
  - Pneumonia [Recovered/Resolved]
  - Somnolence [Unknown]
  - Malignant neoplasm progression [Fatal]
  - General physical health deterioration [Unknown]
  - Anxiety [Unknown]
  - Decreased appetite [Unknown]
